FAERS Safety Report 6980660-1 (Version None)
Quarter: 2010Q3

REPORT INFORMATION
  Report Type: 
  Country: None (occurrence: None)
  Receive Date: 20100914
  Receipt Date: 20100907
  Transmission Date: 20110219
  Serious: Yes (Other)
  Sender: FDA-Public Use
  Company Number: CHPA2010US14304

PATIENT
  Age: 79 Year
  Sex: Male
  Weight: 72.562 kg

DRUGS (2)
  1. BENEFIBER W/ WHEAT DEXTRIN (NCH) [Suspect]
     Indication: BOWEL MOVEMENT IRREGULARITY
     Dosage: 2 TSP, BID
     Route: 048
  2. ^AZOIDAT^ [Concomitant]

REACTIONS (4)
  - CATARACT [None]
  - CATARACT OPERATION [None]
  - DYSPEPSIA [None]
  - OFF LABEL USE [None]
